FAERS Safety Report 8071596-6 (Version None)
Quarter: 2012Q1

REPORT INFORMATION
  Report Type: 
  Country: None (occurrence: None)
  Receive Date: 20120125
  Receipt Date: 20120119
  Transmission Date: 20120608
  Serious: Yes (Life-Threatening, Hospitalization, Other)
  Sender: FDA-Public Use
  Company Number: DE-PFIZER INC-2010126045

PATIENT
  Age: 56 Year
  Sex: Female
  Weight: 60 kg

DRUGS (16)
  1. RAMIPRIL [Suspect]
     Indication: HYPERTENSION
     Dosage: 5 MG, 2X/DAY
     Route: 048
  2. PANTHENOL [Concomitant]
     Indication: RENAL IMPAIRMENT
     Dosage: 100 MG, 3X/DAY
     Route: 048
  3. AEQUAMEN [Concomitant]
     Indication: DIZZINESS
     Dosage: 24 MG, UNK
     Route: 048
  4. LAXOBERAL ^BOEHRINGER INGELHEIM^ [Concomitant]
     Indication: CONSTIPATION
     Dosage: UNK
     Route: 048
     Dates: end: 20080601
  5. DIGITOXIN TAB [Suspect]
     Indication: ATRIAL FIBRILLATION
     Dosage: 1.05MG-0.07MG-0.07MG-0.07MG-0.07MG-0.07MG-0.07MG MONDAY TO SUNDAY
     Route: 048
     Dates: start: 20040101, end: 20080601
  6. ALLOPURINOL [Concomitant]
     Indication: HYPERURICAEMIA
     Dosage: 150 MG, 1X/DAY
     Route: 048
  7. RESTEX [Concomitant]
     Indication: RENAL IMPAIRMENT
     Dosage: 14.25MG BENSERAZIDE/50MG LEVODOPA, 1X/DAY
     Route: 048
  8. PHOS-EX [Concomitant]
     Indication: RENAL IMPAIRMENT
     Dosage: 950 MG, 3X/DAY
     Route: 048
  9. ELUTIT-CALCIUM [Concomitant]
     Indication: RENAL IMPAIRMENT
     Dosage: 15 MG, 1X/DAY
     Route: 048
     Dates: end: 20080601
  10. RENAGEL [Concomitant]
     Indication: RENAL IMPAIRMENT
     Dosage: 800MG-1600MG-1600MG
     Route: 048
  11. DEKRISTOL [Concomitant]
     Indication: RENAL IMPAIRMENT
     Dosage: 20000 IU, UNK
     Route: 048
  12. SIMVASTATIN [Concomitant]
     Indication: CORONARY ARTERY DISEASE
     Dosage: 40 MG, 1X/DAY
     Route: 048
  13. ENOXAPARIN SODIUM [Concomitant]
     Indication: CORONARY ARTERY DISEASE
     Dosage: 40 MG, 1X/DAY
     Route: 058
  14. DOXAZOSIN MESYLATE [Suspect]
     Indication: HYPERTENSION
     Dosage: 4 MG, 2X/DAY
     Route: 048
  15. BISOPROLOL [Suspect]
     Indication: CORONARY ARTERY DISEASE
     Dosage: 5 MG, 2X/DAY
     Route: 048
     Dates: start: 19870101, end: 20080601
  16. NEXIUM [Concomitant]
     Indication: PROPHYLAXIS AGAINST GASTROINTESTINAL ULCER
     Dosage: 40 MG, 1X/DAY
     Route: 048

REACTIONS (3)
  - HYPOTENSION [None]
  - BRADYCARDIA [None]
  - TACHYARRHYTHMIA [None]
